FAERS Safety Report 6863153-1 (Version None)
Quarter: 2010Q3

REPORT INFORMATION
  Report Type: 
  Country: None (occurrence: None)
  Receive Date: 20100721
  Receipt Date: 20100709
  Transmission Date: 20110219
  Serious: Yes (Hospitalization)
  Sender: FDA-Public Use
  Company Number: US-ROCHE-627002

PATIENT
  Sex: Female

DRUGS (10)
  1. PEGINTERFERON ALFA-2A [Suspect]
     Indication: HEPATITIS C
     Route: 058
     Dates: start: 20081229
  2. PEGINTERFERON ALFA-2A [Suspect]
     Route: 058
     Dates: end: 20090321
  3. RIBAVIRIN [Suspect]
     Indication: HEPATITIS C
     Route: 048
     Dates: start: 20081229
  4. RIBAVIRIN [Suspect]
     Dosage: 400 MG EVERY MORNING (AM) AND 200 MG EVERY EVENING(PM).
     Route: 048
     Dates: end: 20090330
  5. VX-950 [Suspect]
     Indication: HEPATITIS C
     Route: 048
     Dates: start: 20081229, end: 20090323
  6. LEXAPRO [Concomitant]
     Indication: DEPRESSION
     Dates: start: 20090217
  7. PRISTIQ [Concomitant]
     Indication: DEPRESSION
     Dates: start: 20090319
  8. TYLENOL W/ CODEINE [Concomitant]
     Indication: BACK PAIN
     Dosage: DRUG: TYLENOL WITH CODEINE (PANADEINE CO).
     Dates: start: 20050101
  9. SYNTHROID [Concomitant]
     Indication: HYPOTHYROIDISM
     Dates: start: 20050820
  10. MULTI-VITAMIN [Concomitant]
     Indication: VITAMIN SUPPLEMENTATION
     Dates: start: 20081201

REACTIONS (1)
  - ALCOHOL POISONING [None]
